FAERS Safety Report 13929980 (Version 2)
Quarter: 2017Q3

REPORT INFORMATION
  Report Type: Spontaneous
  Country: US (occurrence: US)
  Receive Date: 20170901
  Receipt Date: 20170915
  Transmission Date: 20171127
  Serious: No
  Sender: FDA-Public Use
  Company Number: US-ELI_LILLY_AND_COMPANY-US201708012544

PATIENT
  Sex: Female

DRUGS (2)
  1. TALTZ [Suspect]
     Active Substance: IXEKIZUMAB
     Indication: PSORIASIS
     Dosage: 80 MG, 2/M
     Route: 058
     Dates: start: 2017
  2. HUMIRA [Concomitant]
     Active Substance: ADALIMUMAB
     Indication: PRODUCT USED FOR UNKNOWN INDICATION
     Dosage: UNK, UNKNOWN
     Route: 065

REACTIONS (6)
  - Vulvovaginal candidiasis [Recovered/Resolved]
  - Alopecia [Not Recovered/Not Resolved]
  - Acne [Recovering/Resolving]
  - Staphylococcal infection [Recovered/Resolved]
  - Oral candidiasis [Recovered/Resolved]
  - Candida infection [Recovered/Resolved]
